FAERS Safety Report 8807423 (Version 1)
Quarter: 2012Q4

REPORT INFORMATION
  Report Type: Report from Study
  Country: JP (occurrence: JP)
  Receive Date: 20120925
  Receipt Date: 20120925
  Transmission Date: 20130627
  Serious: Yes (Hospitalization, Other)
  Sender: FDA-Public Use
  Company Number: JP-ELI_LILLY_AND_COMPANY-JP201209005056

PATIENT
  Age: 75 Year
  Sex: Female

DRUGS (6)
  1. TERIPARATIDE [Suspect]
     Indication: OSTEOPOROSIS
     Dosage: 20 ug, qd
     Route: 058
     Dates: start: 20110510
  2. DIOVAN [Concomitant]
     Indication: HYPERTENSION
     Dosage: 40 mg, qd
  3. DIART [Concomitant]
     Indication: CARDIAC FAILURE CONGESTIVE
     Dosage: 60 mg, qd
  4. CRESTOR [Concomitant]
     Indication: HYPERLIPIDAEMIA
     Dosage: 2.5 mg, qd
  5. FLUNASE [Concomitant]
     Indication: RHINITIS ALLERGIC
     Dosage: 50 ug, UNK
     Route: 045
  6. MOHRUS [Concomitant]
     Indication: BACK PAIN
     Dosage: UNK

REACTIONS (3)
  - Haemothorax [Recovered/Resolved]
  - Fall [Unknown]
  - Rib fracture [Recovered/Resolved]
